FAERS Safety Report 13008681 (Version 2)
Quarter: 2016Q4

REPORT INFORMATION
  Report Type: Spontaneous
  Country: FR (occurrence: FR)
  Receive Date: 20161208
  Receipt Date: 20161230
  Transmission Date: 20170207
  Serious: Yes (Death, Hospitalization)
  Sender: FDA-Public Use
  Company Number: FR-ROCHE-1865102

PATIENT
  Age: 79 Year
  Sex: Male

DRUGS (9)
  1. ESIDREX [Suspect]
     Active Substance: HYDROCHLOROTHIAZIDE
     Indication: PRODUCT USED FOR UNKNOWN INDICATION
     Dosage: 25 MG HALF DOSE IN MORNING AND 1 DOSE IN EVENING
     Route: 065
     Dates: start: 20161010, end: 20161130
  2. ZOLPIDEM [Concomitant]
     Active Substance: ZOLPIDEM\ZOLPIDEM TARTRATE
     Dosage: 1 DOSE IN THE EVENING FOR MORE THAN ONE YEAR
     Route: 065
  3. AVASTIN [Suspect]
     Active Substance: BEVACIZUMAB
     Indication: ADENOCARCINOMA OF COLON
     Dosage: INJECTABLE SOLUTION
     Route: 041
  4. ESOMEPRAZOLE [Concomitant]
     Active Substance: ESOMEPRAZOLE
     Dosage: 1 DOSE IN THE EVENING (BUT TOOK ONLY 5 TABLETS)
     Route: 065
  5. XELODA [Concomitant]
     Active Substance: CAPECITABINE
     Dosage: STOPPED AT CYCLE 5 BECAUSE OF HAND AND FOOT SYNDROME
     Route: 065
  6. SPASFON (FRANCE) [Concomitant]
     Active Substance: PHLOROGLUCINOL
     Dosage: TOOK 3 TABLETS ONLY
     Route: 065
     Dates: start: 20161122
  7. COZAAR [Suspect]
     Active Substance: LOSARTAN POTASSIUM
     Indication: PRODUCT USED FOR UNKNOWN INDICATION
     Dosage: 50 MG DOSE IN THE MORNING (ONCE A DAY DOSE) FOR MORE THAN 2 MONTHS
     Route: 048
     Dates: start: 201609, end: 20161130
  8. INNOHEP [Concomitant]
     Active Substance: TINZAPARIN SODIUM
     Indication: PULMONARY EMBOLISM
     Route: 065
     Dates: start: 2014
  9. ALPRAZOLAM. [Concomitant]
     Active Substance: ALPRAZOLAM
     Dosage: HALF DOSE IN THE MORNING AND 1 DOSE IN THE EVENING FOR MORE THAN ONE YEAR
     Route: 065

REACTIONS (2)
  - Hepatitis [Fatal]
  - Hepatitis cholestatic [Fatal]

NARRATIVE: CASE EVENT DATE: 20161129
